FAERS Safety Report 7003771-3 (Version None)
Quarter: 2010Q3

REPORT INFORMATION
  Report Type: 
  Country: None (occurrence: None)
  Receive Date: 20100920
  Receipt Date: 20091214
  Transmission Date: 20110219
  Serious: Yes (Other)
  Sender: FDA-Public Use
  Company Number: US-WYE-H12230809

PATIENT
  Sex: Male
  Weight: 79 kg

DRUGS (7)
  1. TORISEL [Suspect]
     Indication: RENAL CELL CARCINOMA
     Route: 042
     Dates: start: 20090901, end: 20091118
  2. PRILOSEC [Concomitant]
     Route: 065
  3. TRICOR [Concomitant]
     Route: 065
  4. GLUCOPHAGE [Concomitant]
     Route: 065
  5. ZESTRIL [Concomitant]
     Route: 065
  6. ZOCOR [Concomitant]
     Route: 065
  7. TOPROL-XL [Concomitant]
     Route: 065

REACTIONS (2)
  - BLOOD CHOLESTEROL INCREASED [None]
  - BLOOD TRIGLYCERIDES INCREASED [None]
